FAERS Safety Report 8534122-0 (Version None)
Quarter: 2012Q3

REPORT INFORMATION
  Report Type: 
  Country: None (occurrence: None)
  Receive Date: 20120724
  Receipt Date: 20120718
  Transmission Date: 20120928
  Serious: Yes (Hospitalization)
  Sender: FDA-Public Use
  Company Number: FR-BAYER-2012-072643

PATIENT
  Age: 72 Year
  Sex: Male

DRUGS (3)
  1. RIFABUTIN [Suspect]
     Indication: MYCOBACTERIAL INFECTION
     Dosage: UNK
     Route: 048
     Dates: start: 20111101, end: 20120503
  2. MOXIFLOXACIN HCL [Suspect]
     Indication: MYCOBACTERIAL INFECTION
     Dosage: UNK
     Route: 048
     Dates: start: 20111101, end: 20120503
  3. CLARITHROMYCIN [Suspect]
     Indication: MYCOBACTERIAL INFECTION
     Dosage: UNK
     Route: 048
     Dates: start: 20111101, end: 20120503

REACTIONS (2)
  - RASH [None]
  - UVEITIS [None]
